FAERS Safety Report 9543488 (Version 3)
Quarter: 2013Q4

REPORT INFORMATION
  Report Type: Report from Study
  Country: KE (occurrence: KE)
  Receive Date: 20130923
  Receipt Date: 20131029
  Transmission Date: 20140711
  Serious: Yes (Death, Life-Threatening, Hospitalization, Other)
  Sender: FDA-Public Use
  Company Number: KE-GILEAD-2013-0083408

PATIENT
  Age: 35 Year
  Sex: Male
  Weight: 59.9 kg

DRUGS (11)
  1. EMTRICITABINE/TENOFOVIR DISOPROXIL FUMARATE [Suspect]
     Indication: HIV INFECTION
     Dosage: UNK
     Dates: start: 20130815, end: 20130824
  2. EFAVIRENZ [Suspect]
     Dosage: UNK
     Dates: start: 20130815, end: 20130824
  3. RALTEGRAVIR [Suspect]
     Dosage: UNK
     Dates: start: 20130815, end: 20130824
  4. RUSF [Suspect]
     Dosage: UNK
     Dates: start: 20130815, end: 20130822
  5. PREDNISOLONE [Suspect]
     Dosage: UNK
     Dates: start: 20130806, end: 20130824
  6. COTRIMOXAZOLE [Suspect]
     Dosage: UNK
     Dates: start: 20130808, end: 20130824
  7. CEFTRIAXONE [Suspect]
     Dosage: UNK
     Dates: start: 20130815, end: 20130824
  8. FLUCONAZOLE [Suspect]
     Dosage: UNK
     Dates: start: 20130815, end: 20130824
  9. XPEN [Suspect]
     Dosage: UNK
     Dates: start: 20130806, end: 20130808
  10. CHLORAMPHENICOL [Suspect]
     Dosage: UNK
     Dates: start: 20130806, end: 20130808
  11. FLAGYL /00012501/ [Suspect]
     Dosage: UNK
     Dates: start: 20130819, end: 20130824

REACTIONS (10)
  - Immune reconstitution inflammatory syndrome [Fatal]
  - Acute respiratory distress syndrome [Fatal]
  - Sepsis [Fatal]
  - Hyperkalaemia [Fatal]
  - Pulmonary embolism [Fatal]
  - Pulmonary tuberculosis [Fatal]
  - Intestinal obstruction [Fatal]
  - Pyrexia [Fatal]
  - Alanine aminotransferase increased [Fatal]
  - Renal failure acute [Fatal]
